FAERS Safety Report 14946172 (Version 6)
Quarter: 2018Q2

REPORT INFORMATION
  Report Type: Report from Study
  Country: US (occurrence: US)
  Receive Date: 20180529
  Receipt Date: 20180629
  Transmission Date: 20180711
  Serious: Yes (Other)
  Sender: FDA-Public Use
  Company Number: US-ROCHE-2129974

PATIENT
  Age: 54 Year
  Sex: Male
  Weight: 113.5 kg

DRUGS (2)
  1. OCREVUS [Suspect]
     Active Substance: OCRELIZUMAB
     Indication: RELAPSING MULTIPLE SCLEROSIS
     Dosage: 1/2 OF FIRST DOSE
     Route: 042
     Dates: start: 201707, end: 201707
  2. OCREVUS [Suspect]
     Active Substance: OCRELIZUMAB
     Dosage: 2ND HALF OF FIRST DOSE
     Route: 042
     Dates: start: 201708, end: 201708

REACTIONS (6)
  - Skin ulcer [Recovered/Resolved]
  - Laceration [Recovered/Resolved]
  - Agitation [Not Recovered/Not Resolved]
  - Cellulitis [Recovered/Resolved]
  - Infection [Recovered/Resolved]
  - Limb injury [Not Recovered/Not Resolved]

NARRATIVE: CASE EVENT DATE: 201802
